FAERS Safety Report 16437411 (Version 2)
Quarter: 2019Q2

REPORT INFORMATION
  Report Type: Spontaneous
  Country: IT (occurrence: IT)
  Receive Date: 20190615
  Receipt Date: 20190621
  Transmission Date: 20190711
  Serious: Yes (Other)
  Sender: FDA-Public Use
  Company Number: IT-ACCORD-132988

PATIENT
  Age: 15 Year
  Sex: Male

DRUGS (1)
  1. ARIPIPRAZOLE. [Suspect]
     Active Substance: ARIPIPRAZOLE
     Indication: AUTISM SPECTRUM DISORDER

REACTIONS (3)
  - Vertigo [Unknown]
  - Headache [Unknown]
  - Salivary hypersecretion [Unknown]

NARRATIVE: CASE EVENT DATE: 20190215
